FAERS Safety Report 22264946 (Version 1)
Quarter: 2023Q2

REPORT INFORMATION
  Report Type: Spontaneous
  Country: CA (occurrence: CA)
  Receive Date: 20230428
  Receipt Date: 20230428
  Transmission Date: 20230722
  Serious: Yes (Other)
  Sender: FDA-Public Use
  Company Number: CA-SAMSUNG BIOEPIS-SB-2020-28970

PATIENT
  Sex: Female
  Weight: 86 kg

DRUGS (14)
  1. ETANERCEPT [Suspect]
     Active Substance: ETANERCEPT
     Indication: Ankylosing spondylitis
     Route: 058
  2. ETANERCEPT [Suspect]
     Active Substance: ETANERCEPT
     Dosage: UNKNOWN
     Route: 058
  3. ETANERCEPT [Suspect]
     Active Substance: ETANERCEPT
     Dosage: UNKNOWN
     Route: 058
  4. ETANERCEPT [Suspect]
     Active Substance: ETANERCEPT
     Dosage: UNKNOWN
     Route: 058
  5. METHOTREXATE [Suspect]
     Active Substance: METHOTREXATE
     Indication: Product used for unknown indication
     Dosage: UNKNOWN
     Route: 048
  6. NAPROSYN [Suspect]
     Active Substance: NAPROXEN
     Indication: Product used for unknown indication
     Dosage: UNKNOWN
     Route: 065
  7. CELEBREX [Suspect]
     Active Substance: CELECOXIB
     Indication: Product used for unknown indication
     Dosage: UNKNOWN
     Route: 048
  8. CELEBREX [Suspect]
     Active Substance: CELECOXIB
     Dosage: UNKNOWN
     Route: 048
  9. IBUPROFEN [Concomitant]
     Active Substance: IBUPROFEN
     Indication: Product used for unknown indication
     Dosage: UNKNOWN
     Route: 065
  10. NAPROXEN [Concomitant]
     Active Substance: NAPROXEN
     Indication: Product used for unknown indication
     Dosage: UNKNOWN
     Route: 048
  11. SYNTHROID [Concomitant]
     Active Substance: LEVOTHYROXINE SODIUM
     Indication: Product used for unknown indication
     Dosage: UNKNOWN
     Route: 065
  12. TYLENOL [Concomitant]
     Active Substance: ACETAMINOPHEN
     Indication: Arthritis
     Dosage: UNKNOWN, 730 (UNIT NOT PROVIDED)
     Route: 065
  13. HUMIRA [Concomitant]
     Active Substance: ADALIMUMAB
     Indication: Product used for unknown indication
     Dosage: UNKNOWN, SOLUTION SUBCUTANEOUS
     Route: 058
  14. PREDNISONE [Concomitant]
     Active Substance: PREDNISONE
     Indication: Product used for unknown indication
     Dosage: UNKNOWN
     Route: 065

REACTIONS (13)
  - Abdominal discomfort [Unknown]
  - Arthralgia [Unknown]
  - Back pain [Unknown]
  - Drug intolerance [Unknown]
  - General physical health deterioration [Unknown]
  - Joint swelling [Unknown]
  - Hepatic enzyme increased [Unknown]
  - Musculoskeletal stiffness [Unknown]
  - Neck pain [Unknown]
  - Peripheral swelling [Unknown]
  - Renal impairment [Unknown]
  - Weight increased [Unknown]
  - Drug ineffective [Unknown]
